FAERS Safety Report 7683083 (Version 6)
Quarter: 2012Q4

REPORT INFORMATION
  Report Type: Report from Study
  Country: HU (occurrence: HU)
  Receive Date: 20101125
  Receipt Date: 20121217
  Transmission Date: 20130627
  Serious: Yes (Hospitalization, Other)
  Sender: FDA-Public Use
  Company Number: HU-BIOGENIDEC-2010BI037178

PATIENT
  Age: 33 Year
  Sex: Female

DRUGS (3)
  1. NATALIZUMAB [Suspect]
     Indication: MULTIPLE SCLEROSIS
     Route: 042
     Dates: start: 20070124, end: 20101022
  2. XANAX [Concomitant]
     Indication: ANXIETY
     Route: 048
     Dates: start: 2007
  3. ISOPRINOSINE [Concomitant]
     Route: 048
     Dates: start: 20101124

REACTIONS (2)
  - Progressive multifocal leukoencephalopathy [Not Recovered/Not Resolved]
  - Immune reconstitution inflammatory syndrome [Recovered/Resolved]
